FAERS Safety Report 17394495 (Version 1)
Quarter: 2020Q1

REPORT INFORMATION
  Report Type: Spontaneous
  Country: US (occurrence: US)
  Receive Date: 20200210
  Receipt Date: 20200210
  Transmission Date: 20200409
  Serious: Yes (Hospitalization, Other)
  Sender: FDA-Public Use
  Company Number: US-APOTEX-2020AP007303

PATIENT
  Age: 1 Month
  Sex: Male
  Weight: 4.4 kg

DRUGS (8)
  1. ALBUTEROL. [Suspect]
     Active Substance: ALBUTEROL
     Dosage: 15 MG, QD (INHALATION)
     Route: 055
  2. FUROSEMIDE. [Concomitant]
     Active Substance: FUROSEMIDE
     Indication: HETEROTAXIA
     Dosage: UNK
     Route: 065
  3. HEPARIN [Concomitant]
     Active Substance: HEPARIN SODIUM
     Indication: HETEROTAXIA
     Dosage: UNK
     Route: 065
  4. ASPIRIN                            /00002701/ [Concomitant]
     Active Substance: ASPIRIN
     Indication: HETEROTAXIA
     Dosage: UNK
     Route: 065
  5. ALBUTEROL. [Suspect]
     Active Substance: ALBUTEROL
     Indication: DYSPNOEA
     Dosage: 2.5 MG, Q.12H (INHALATION)
     Route: 055
  6. HEPARIN [Concomitant]
     Active Substance: HEPARIN SODIUM
     Indication: ATRIOVENTRICULAR SEPTAL DEFECT
  7. ASPIRIN                            /00002701/ [Concomitant]
     Active Substance: ASPIRIN
     Indication: ATRIOVENTRICULAR SEPTAL DEFECT
  8. FUROSEMIDE. [Concomitant]
     Active Substance: FUROSEMIDE
     Indication: ATRIOVENTRICULAR SEPTAL DEFECT

REACTIONS (1)
  - Supraventricular tachycardia [Recovered/Resolved]
